FAERS Safety Report 5336874-X (Version None)
Quarter: 2007Q2

REPORT INFORMATION
  Report Type: 
  Country: None (occurrence: None)
  Receive Date: 20070524
  Receipt Date: 20070524
  Transmission Date: 20071010
  Serious: Yes (Other)
  Sender: FDA-Public Use
  Company Number: None

PATIENT
  Sex: Male
  Weight: 68.0396 kg

DRUGS (1)
  1. LEXAPRO [Suspect]
     Indication: GENERALISED ANXIETY DISORDER
     Dosage: 20MN 1 PER DAY PO
     Route: 048
     Dates: start: 20060901, end: 20070601

REACTIONS (7)
  - AFFECT LABILITY [None]
  - CONFUSIONAL STATE [None]
  - CONVULSION [None]
  - DRUG WITHDRAWAL SYNDROME [None]
  - INFLUENZA [None]
  - MENTAL DISORDER [None]
  - SUICIDAL IDEATION [None]
